FAERS Safety Report 5103965-8 (Version None)
Quarter: 2006Q3

REPORT INFORMATION
  Report Type: 
  Country: None (occurrence: None)
  Receive Date: 20060901
  Receipt Date: 20060825
  Transmission Date: 20061208
  Serious: Yes (Hospitalization)
  Sender: FDA-Public Use
  Company Number: 200610218BBE

PATIENT
  Age: 46 Year
  Sex: Female
  Weight: 65 kg

DRUGS (11)
  1. GAMUNEX [Suspect]
     Indication: IDIOPATHIC THROMBOCYTOPENIC PURPURA
     Dosage: 60 G TOTAL DAILY
     Dates: start: 20030225
  2. GAMUNEX [Suspect]
     Indication: IDIOPATHIC THROMBOCYTOPENIC PURPURA
     Dosage: 60 G TOTAL DAILY
     Dates: start: 20031230
  3. GAMUNEX [Suspect]
     Indication: IDIOPATHIC THROMBOCYTOPENIC PURPURA
     Dosage: 60 G TOTAL DAILY
     Dates: start: 20031231
  4. GAMUNEX [Suspect]
     Indication: IDIOPATHIC THROMBOCYTOPENIC PURPURA
     Dosage: 60 G TOTAL DAILY
     Dates: start: 20060302
  5. GAMUNEX [Suspect]
     Indication: IDIOPATHIC THROMBOCYTOPENIC PURPURA
     Dosage: 60 G TOTAL DAILY
     Dates: start: 20060302
  6. GAMUNEX [Suspect]
     Indication: IDIOPATHIC THROMBOCYTOPENIC PURPURA
     Dosage: 60 G TOTAL DAILY
     Dates: start: 20060302
  7. COPAXONE [Concomitant]
  8. FEMHRT [Concomitant]
  9. DITROPAN [Concomitant]
  10. CYCLOKAPRON [Concomitant]
  11. RITUXIMAB [Concomitant]

REACTIONS (3)
  - ABDOMINAL PAIN UPPER [None]
  - HOT FLUSH [None]
  - URTICARIA [None]
